FAERS Safety Report 6220826-1 (Version None)
Quarter: 2009Q2

REPORT INFORMATION
  Report Type: 
  Country: None (occurrence: None)
  Receive Date: 20090610
  Receipt Date: 20090427
  Transmission Date: 20091009
  Serious: No
  Sender: FDA-Public Use
  Company Number: US-TYCO HEALTHCARE/MALLINCKRODT-T200900969

PATIENT
  Sex: Female
  Weight: 56.689 kg

DRUGS (1)
  1. OCTREOSCAN [Suspect]
     Dosage: UNK
     Dates: start: 20090420, end: 20090420

REACTIONS (1)
  - ACCIDENTAL EXPOSURE [None]
